FAERS Safety Report 4623053-4 (Version None)
Quarter: 2005Q1

REPORT INFORMATION
  Report Type: 
  Country: None (occurrence: None)
  Receive Date: 20050330
  Receipt Date: 20050321
  Transmission Date: 20050727
  Serious: Yes (Hospitalization)
  Sender: FDA-Public Use
  Company Number: US-BRISTOL-MYERS SQUIBB COMPANY-12906145

PATIENT
  Age: 59 Year
  Sex: Male
  Weight: 84 kg

DRUGS (14)
  1. CISPLATIN [Suspect]
     Indication: PANCREATIC CARCINOMA
     Dosage: (25 MG/M2), REDUCED TO 39 MG
     Route: 042
     Dates: start: 20040927, end: 20041011
  2. INTRON A [Suspect]
     Indication: PANCREATIC CARCINOMA
     Dosage: REDUCED TO 2.25 MG
     Route: 042
     Dates: start: 20040927, end: 20041015
  3. FLUOROURACIL [Suspect]
     Indication: PANCREATIC CARCINOMA
     Dosage: (175 MG/M2), REDUCED TO 273 MG
     Route: 042
     Dates: start: 20040927, end: 20041015
  4. INSULIN [Concomitant]
     Dosage: DOSAGE FORM = UNITS
     Dates: start: 20040901
  5. METOPROLOL TARTRATE [Concomitant]
     Dates: start: 20040901
  6. LANSOPRAZOLE [Concomitant]
     Dates: start: 20040901
  7. PANCRELIPASE [Concomitant]
     Dates: start: 20040901
  8. OXYCODONE [Concomitant]
     Dates: start: 20040901
  9. NORTRIPTYLINE HCL [Concomitant]
     Dosage: AT BEDTIME
     Dates: start: 20040901
  10. WARFARIN [Concomitant]
     Dosage: AT BEDTIME
     Dates: start: 20040901
  11. LOPERAMIDE HCL [Concomitant]
     Dosage: 1-2 MG
     Dates: start: 20040901
  12. ESOMEPRAZOLE [Concomitant]
     Dates: start: 20040901
  13. CEPHALEXIN [Concomitant]
     Dates: start: 20040901
  14. BROMHEXINE [Concomitant]
     Dates: start: 20040901

REACTIONS (2)
  - MUCOSAL INFLAMMATION [None]
  - PYREXIA [None]
